FAERS Safety Report 5765492-4 (Version None)
Quarter: 2008Q2

REPORT INFORMATION
  Report Type: 
  Country: None (occurrence: None)
  Receive Date: 20080611
  Receipt Date: 20080602
  Transmission Date: 20081010
  Serious: Yes (Hospitalization)
  Sender: FDA-Public Use
  Company Number: B0523366A

PATIENT
  Age: 71 Year
  Sex: Male

DRUGS (7)
  1. ALKERAN [Suspect]
     Dosage: 24MG PER DAY
     Route: 048
     Dates: start: 20071010, end: 20080401
  2. KEPPRA [Concomitant]
     Indication: DRUG USE FOR UNKNOWN INDICATION
     Dosage: 750MG PER DAY
     Route: 048
  3. VINCRISTINE [Concomitant]
     Route: 065
  4. CYCLOPHOSPHAMIDE [Concomitant]
     Route: 065
  5. MABTHERA [Concomitant]
     Route: 065
  6. PREDNISONE TAB [Concomitant]
     Route: 065
  7. DEXAMETHASONE TAB [Concomitant]
     Route: 065

REACTIONS (2)
  - PANCYTOPENIA [None]
  - SINUSITIS [None]
